FAERS Safety Report 21483904 (Version 3)
Quarter: 2023Q1

REPORT INFORMATION
  Report Type: Spontaneous
  Country: US (occurrence: US)
  Receive Date: 20221020
  Receipt Date: 20230125
  Transmission Date: 20230418
  Serious: No
  Sender: FDA-Public Use
  Company Number: US-NOVARTISTESTPH-NVSC2022US236315

PATIENT
  Sex: Female

DRUGS (1)
  1. ESTRADIOL [Suspect]
     Active Substance: ESTRADIOL
     Indication: Product used for unknown indication
     Dosage: 0.1 MG, QD, (2X/WEEKLY)
     Route: 062

REACTIONS (4)
  - Product adhesion issue [Unknown]
  - Hyperhidrosis [Unknown]
  - Feeling hot [Unknown]
  - Application site irritation [Unknown]
